FAERS Safety Report 9826587 (Version 1)
Quarter: 2013Q4

REPORT INFORMATION
  Report Type: Spontaneous
  Country: US (occurrence: None)
  Receive Date: 20131223
  Receipt Date: 20131223
  Transmission Date: 20140711
  Serious: No
  Sender: FDA-Public Use
  Company Number: 221705LEO

PATIENT
  Age: 62 Year
  Sex: Female

DRUGS (4)
  1. PICATO [Suspect]
     Indication: SKIN DISORDER
     Dates: start: 20130517, end: 20130517
  2. ZYRTEC (CETIRIZINE HYDROCHLORIDE) [Concomitant]
  3. ESTROGEN PATCH (ESTROGEN NOS) [Concomitant]
  4. VITAMINS [Concomitant]

REACTIONS (10)
  - Nasal oedema [None]
  - Dizziness [None]
  - Tinnitus [None]
  - Application site pain [None]
  - Application site pain [None]
  - Application site vesicles [None]
  - Headache [None]
  - Drug administered at inappropriate site [None]
  - Off label use [None]
  - Incorrect drug administration duration [None]
